FAERS Safety Report 7089635-8 (Version None)
Quarter: 2010Q4

REPORT INFORMATION
  Report Type: 
  Country: None (occurrence: None)
  Receive Date: 20101108
  Receipt Date: 20101029
  Transmission Date: 20110411
  Serious: Yes (Hospitalization)
  Sender: FDA-Public Use
  Company Number: US-ASTRAZENECA-2010SE50305

PATIENT
  Age: 46 Year
  Sex: Male
  Weight: 74.4 kg

DRUGS (5)
  1. NEXIUM [Suspect]
     Indication: HELICOBACTER INFECTION
     Route: 048
     Dates: start: 20100801
  2. PRILOSEC [Suspect]
     Route: 048
  3. CRESTOR [Concomitant]
  4. KLONOPIN [Concomitant]
     Indication: INSOMNIA
  5. ASPIRIN [Concomitant]

REACTIONS (11)
  - ABDOMINAL PAIN [None]
  - ARTHRALGIA [None]
  - BACK PAIN [None]
  - CHEST PAIN [None]
  - CHOLECYSTECTOMY [None]
  - HOT FLUSH [None]
  - HYPERSENSITIVITY [None]
  - NERVOUSNESS [None]
  - PHOTOSENSITIVITY REACTION [None]
  - STRESS [None]
  - WEIGHT DECREASED [None]
